FAERS Safety Report 6658077-9 (Version None)
Quarter: 2010Q1

REPORT INFORMATION
  Report Type: 
  Country: None (occurrence: None)
  Receive Date: 20100330
  Receipt Date: 20100324
  Transmission Date: 20100710
  Serious: Yes (Life-Threatening, Hospitalization)
  Sender: FDA-Public Use
  Company Number: JP-MERCK-1003USA04434

PATIENT
  Age: 85 Year
  Sex: Female

DRUGS (4)
  1. JANUVIA [Suspect]
     Indication: DIABETES MELLITUS
     Route: 048
     Dates: start: 20100311, end: 20100320
  2. GLIBENCLAMID [Concomitant]
     Indication: DIABETES MELLITUS
     Route: 048
     Dates: start: 20100311, end: 20100320
  3. GLIBENCLAMID [Concomitant]
     Route: 048
     Dates: end: 20100310
  4. BUFORMIN HYDROCHLORIDE [Concomitant]
     Indication: DIABETES MELLITUS
     Route: 048
     Dates: end: 20100320

REACTIONS (1)
  - HYPOGLYCAEMIA [None]
